FAERS Safety Report 19720983 (Version 1)
Quarter: 2021Q3

REPORT INFORMATION
  Report Type: Spontaneous
  Country: US (occurrence: US)
  Receive Date: 20210819
  Receipt Date: 20210819
  Transmission Date: 20211014
  Serious: Yes (Death)
  Sender: FDA-Public Use
  Company Number: None

PATIENT
  Sex: Female
  Weight: 53.55 kg

DRUGS (18)
  1. BUDESONIDE. [Concomitant]
     Active Substance: BUDESONIDE
  2. SUCRALFATE. [Concomitant]
     Active Substance: SUCRALFATE
  3. ZOFRAN [Concomitant]
     Active Substance: ONDANSETRON HYDROCHLORIDE
  4. SENNA [Concomitant]
     Active Substance: SENNA LEAF\SENNOSIDES\SENNOSIDES A AND B
  5. MIRALAX [Concomitant]
     Active Substance: POLYETHYLENE GLYCOL 3350
  6. OXYCODONE [Concomitant]
     Active Substance: OXYCODONE
  7. PANTOPRAZOLE [Concomitant]
     Active Substance: PANTOPRAZOLE
  8. LOSARTAN. [Concomitant]
     Active Substance: LOSARTAN
  9. PROCHLORPERAZINE. [Concomitant]
     Active Substance: PROCHLORPERAZINE
  10. MELATONIN [Concomitant]
     Active Substance: MELATONIN
  11. CAPECITABINE TABLETS [Suspect]
     Active Substance: CAPECITABINE
     Indication: GASTRIC CANCER
     Route: 048
  12. GABAPENTIN. [Concomitant]
     Active Substance: GABAPENTIN
  13. FENTANYL. [Concomitant]
     Active Substance: FENTANYL
  14. TYLENOL [Concomitant]
     Active Substance: ACETAMINOPHEN
  15. LEVOTHYROXINE. [Concomitant]
     Active Substance: LEVOTHYROXINE
  16. AZATHIOPRINE. [Concomitant]
     Active Substance: AZATHIOPRINE
  17. MEDICAL MARIJUANA [Concomitant]
     Active Substance: CANNABIS SATIVA SUBSP. INDICA TOP
  18. CALCIUM MAGNESIUM [Concomitant]
     Active Substance: CALCIUM\MAGNESIUM

REACTIONS (2)
  - Neoplasm progression [None]
  - Therapy non-responder [None]
